FAERS Safety Report 9531178 (Version 1)
Quarter: 2013Q3

REPORT INFORMATION
  Report Type: Report from Study
  Country: LB (occurrence: LB)
  Receive Date: 20130918
  Receipt Date: 20130918
  Transmission Date: 20140515
  Serious: Yes (Other)
  Sender: FDA-Public Use
  Company Number: LB-SANOFI-AVENTIS-2013SA091720

PATIENT
  Age: 50 Year
  Sex: Female

DRUGS (9)
  1. LANTUS SOLOSTAR [Suspect]
     Indication: DIABETES MELLITUS
     Dosage: DOSE:17 UNIT(S)
     Route: 058
  2. AMARYL [Suspect]
     Indication: DIABETES MELLITUS
     Dosage: DOSE: 20?DAILY DOSE: 60
     Route: 058
  3. SOLOSTAR [Concomitant]
  4. GLUCOPHAGE [Concomitant]
     Route: 048
  5. CONCOR [Concomitant]
     Route: 048
  6. ASPICOT [Concomitant]
     Route: 048
  7. TRITACE [Concomitant]
     Route: 048
  8. FLUDEX [Concomitant]
     Route: 048
  9. CORVASAL [Concomitant]
     Route: 048

REACTIONS (3)
  - Urinary tract infection [Recovering/Resolving]
  - Anaemia [Recovering/Resolving]
  - Drug dose omission [Unknown]
